FAERS Safety Report 20393998 (Version 2)
Quarter: 2022Q1

REPORT INFORMATION
  Report Type: Report from Study
  Country: DE (occurrence: DE)
  Receive Date: 20220129
  Receipt Date: 20220201
  Transmission Date: 20220423
  Serious: Yes (Hospitalization)
  Sender: FDA-Public Use
  Company Number: DE-ABBVIE-22K-062-4252453-00

PATIENT
  Age: 74 Year
  Sex: Female

DRUGS (2)
  1. CARBIDOPA\LEVODOPA [Suspect]
     Active Substance: CARBIDOPA\LEVODOPA
     Indication: Parkinson^s disease
     Dosage: MD 9 ML CRD IS UNKNOWN CRN 1.7 ML/H ED 2.5 ML
     Route: 050
     Dates: start: 20211112, end: 20220128
  2. CARBIDOPA\LEVODOPA [Suspect]
     Active Substance: CARBIDOPA\LEVODOPA
     Route: 050
     Dates: start: 20220128

REACTIONS (5)
  - Femoral neck fracture [Not Recovered/Not Resolved]
  - Unintentional medical device removal [Recovered/Resolved]
  - Device leakage [Not Recovered/Not Resolved]
  - Fall [Not Recovered/Not Resolved]
  - Hypermobility syndrome [Unknown]

NARRATIVE: CASE EVENT DATE: 20220108
